FAERS Safety Report 11861537 (Version 1)
Quarter: 2015Q4

REPORT INFORMATION
  Report Type: Other
  Country: GB (occurrence: GB)
  Receive Date: 20151222
  Receipt Date: 20151222
  Transmission Date: 20160305
  Serious: Yes (Life-Threatening, Hospitalization, Other)
  Sender: FDA-Public Use
  Company Number: GB-MYLANLABS-2015M1044409

PATIENT

DRUGS (7)
  1. AMITRIPTYLINE HYDROCHLORIDE. [Concomitant]
     Active Substance: AMITRIPTYLINE HYDROCHLORIDE
     Dosage: AS    DIRECTED
     Dates: start: 20131014, end: 20151104
  2. INDAPAMIDE. [Suspect]
     Active Substance: INDAPAMIDE
     Dosage: UNK
     Route: 048
     Dates: start: 20151104, end: 20151114
  3. COCODAMOL [Concomitant]
     Active Substance: ACETAMINOPHEN\CODEINE PHOSPHATE
     Dosage: 4 TIMES A DAY AS NECESSARY
     Dates: start: 20141219, end: 20151104
  4. PARACETAMOL [Concomitant]
     Active Substance: ACETAMINOPHEN
     Dosage: TAKE 1 OR 2 4 TIMES/DAY WHEN REQUIRED FOR FOR P...
     Dates: start: 20131104
  5. ADCAL                              /07357001/ [Concomitant]
     Dosage: 1 DF, BID
     Dates: start: 20140912
  6. CANDESARTAN [Concomitant]
     Active Substance: CANDESARTAN
     Dosage: 1 DF, QD
     Dates: start: 20150703
  7. PREGABALIN. [Concomitant]
     Active Substance: PREGABALIN
     Dosage: USE AS DIRECTED
     Dates: start: 20151009, end: 20151108

REACTIONS (3)
  - Seizure [Recovered/Resolved]
  - Hyponatraemia [Recovered/Resolved]
  - Confusional state [Recovered/Resolved]

NARRATIVE: CASE EVENT DATE: 20151114
